FAERS Safety Report 16331596 (Version 1)
Quarter: 2019Q2

REPORT INFORMATION
  Report Type: Spontaneous
  Country: JP (occurrence: JP)
  Receive Date: 20190520
  Receipt Date: 20190520
  Transmission Date: 20190711
  Serious: Yes (Life-Threatening)
  Sender: FDA-Public Use
  Company Number: JP-PFIZER INC-2019212871

PATIENT
  Age: 87 Year
  Sex: Male

DRUGS (4)
  1. PYDOXAL [Concomitant]
     Active Substance: PYRIDOXAL
     Dosage: UNK
  2. AMBISOME [Suspect]
     Active Substance: AMPHOTERICIN B
     Indication: FUNGAL INFECTION
     Dosage: 2.5 MG/KG, DAILY
     Route: 041
     Dates: start: 20190510, end: 20190514
  3. MEROPEN [Suspect]
     Active Substance: MEROPENEM
     Indication: FUNGAL INFECTION
     Dosage: UNK UNK, DAILY
     Route: 041
     Dates: start: 20190510
  4. HEPARIN CALCIUM [Concomitant]
     Active Substance: HEPARIN CALCIUM
     Dosage: UNK (24-HOUR)
     Dates: start: 20190515

REACTIONS (1)
  - Cerebral infarction [Unknown]

NARRATIVE: CASE EVENT DATE: 20190515
